FAERS Safety Report 4703128-1 (Version None)
Quarter: 2005Q2

REPORT INFORMATION
  Report Type: 
  Country: None (occurrence: None)
  Receive Date: 20050629
  Receipt Date: 20050513
  Transmission Date: 20051028
  Serious: Yes (Other)
  Sender: FDA-Public Use
  Company Number: JP-GLAXOSMITHKLINE-B0381719A

PATIENT
  Age: 21 Year
  Sex: Male

DRUGS (9)
  1. PAXIL [Suspect]
     Indication: DEPRESSION
     Route: 048
     Dates: start: 20031104, end: 20040409
  2. PROMETHAZINE HCL [Concomitant]
     Route: 048
  3. CLOTIAZEPAM [Concomitant]
     Route: 048
  4. MOSAPRIDE CITRATE [Concomitant]
     Indication: ABDOMINAL DISCOMFORT
     Dosage: 15MG PER DAY
     Route: 048
     Dates: start: 20031104, end: 20031209
  5. BROTIZOLAM [Concomitant]
     Indication: INSOMNIA
     Dosage: .25MG PER DAY
     Route: 048
     Dates: start: 20031104, end: 20040409
  6. BROMAZEPAM [Concomitant]
     Indication: ANXIETY
     Route: 048
     Dates: start: 20031104, end: 20031209
  7. METHOTRIMEPRAZINE [Concomitant]
     Indication: SEDATION
     Route: 048
     Dates: start: 20031210, end: 20040108
  8. VEGETAMIN-B [Concomitant]
     Indication: SEDATION
     Route: 048
     Dates: start: 20031216
  9. VITAMIN A [Concomitant]
     Indication: SEDATION
     Route: 048
     Dates: start: 20031219, end: 20040108

REACTIONS (5)
  - AGGRESSION [None]
  - DYSAESTHESIA [None]
  - HYPOCHONDRIASIS [None]
  - MANIA [None]
  - PHOBIA [None]
